FAERS Safety Report 5919029-7 (Version None)
Quarter: 2008Q4

REPORT INFORMATION
  Report Type: 
  Country: None (occurrence: None)
  Receive Date: 20081014
  Receipt Date: 20081014
  Transmission Date: 20090506
  Serious: Yes (Other)
  Sender: FDA-Public Use
  Company Number: None

PATIENT
  Age: 54 Year
  Sex: Female
  Weight: 74.8435 kg

DRUGS (1)
  1. ALLI [Suspect]
     Dosage: 1 PILL AT MEALTS 3 TIMES A DAY
     Dates: start: 20081001, end: 20081006

REACTIONS (3)
  - ACNE [None]
  - BLISTER [None]
  - PRURITUS [None]
